FAERS Safety Report 7671935-1 (Version None)
Quarter: 2011Q3

REPORT INFORMATION
  Report Type: 
  Country: None (occurrence: None)
  Receive Date: 20110809
  Receipt Date: 20110729
  Transmission Date: 20111222
  Serious: Yes (Hospitalization)
  Sender: FDA-Public Use
  Company Number: US-GLAXOSMITHKLINE-A0937572A

PATIENT
  Age: 12 Year
  Sex: Male
  Weight: 31.8 kg

DRUGS (2)
  1. ZOFRAN [Suspect]
     Indication: PROPHYLAXIS OF NAUSEA AND VOMITING
     Route: 064
  2. AMITRIPTYLINE HCL [Suspect]
     Indication: AFFECTIVE DISORDER
     Route: 065

REACTIONS (14)
  - ANXIETY [None]
  - DRUG HYPERSENSITIVITY [None]
  - AFFECTIVE DISORDER [None]
  - CONVULSION [None]
  - SOCIAL AVOIDANT BEHAVIOUR [None]
  - DEPRESSED MOOD [None]
  - DEPRESSION [None]
  - ABDOMINAL PAIN UPPER [None]
  - GASTROINTESTINAL DISORDER [None]
  - FUNGAL INFECTION [None]
  - DISSOCIATION [None]
  - AUTISM [None]
  - ILL-DEFINED DISORDER [None]
  - MATERNAL EXPOSURE DURING PREGNANCY [None]
